FAERS Safety Report 11059289 (Version 6)
Quarter: 2015Q3

REPORT INFORMATION
  Report Type: Report from Study
  Country: CA (occurrence: CA)
  Receive Date: 20150423
  Receipt Date: 20150923
  Transmission Date: 20151125
  Serious: Yes (Life-Threatening, Hospitalization)
  Sender: FDA-Public Use
  Company Number: CA-SA-2015SA042053

PATIENT
  Age: 63 Year
  Sex: Male
  Weight: 110.4 kg

DRUGS (13)
  1. LUPRON [Concomitant]
     Active Substance: LEUPROLIDE ACETATE
     Indication: PROSTATE CANCER
     Dosage: Q4MONTHS
     Dates: start: 2012
  2. FLOMAX [Concomitant]
     Active Substance: TAMSULOSIN HYDROCHLORIDE
     Indication: DYSURIA
     Route: 048
     Dates: start: 20150515
  3. DENOSUMAB [Concomitant]
     Active Substance: DENOSUMAB
     Indication: OSTEOPOROSIS PROPHYLAXIS
     Dosage: EVERY FOUR WEEKS
     Route: 048
     Dates: start: 2014
  4. PREDNISONE. [Concomitant]
     Active Substance: PREDNISONE
     Indication: ROUTINE HEALTH MAINTENANCE
     Route: 048
     Dates: start: 201503
  5. METFORMIN [Concomitant]
     Active Substance: METFORMIN HYDROCHLORIDE
     Indication: DIABETES MELLITUS
     Route: 048
     Dates: start: 2000
  6. RAMIPRIL. [Concomitant]
     Active Substance: RAMIPRIL
     Indication: HYPERTENSION
     Route: 048
  7. CALCIUM [Concomitant]
     Active Substance: CALCIUM
     Indication: PAIN
     Route: 048
     Dates: start: 2014
  8. JEVTANA [Suspect]
     Active Substance: CABAZITAXEL
     Indication: PROSTATE CANCER METASTATIC
     Route: 042
     Dates: start: 20150326, end: 20150416
  9. VENTOLIN [Concomitant]
     Active Substance: ALBUTEROL SULFATE
     Dosage: DOSE:1 PUFF(S)
     Route: 055
     Dates: start: 201506
  10. FLURAZEPAM [Concomitant]
     Active Substance: FLURAZEPAM\FLURAZEPAM HYDROCHLORIDE
     Indication: SEDATION
     Route: 048
  11. GLICLAZIDE [Concomitant]
     Active Substance: GLICLAZIDE
     Indication: DIABETES MELLITUS
     Route: 048
     Dates: start: 2014
  12. MELOXICAM. [Concomitant]
     Active Substance: MELOXICAM
     Indication: ARTHRITIS
     Route: 048
  13. PANTOLOC [Concomitant]
     Active Substance: PANTOPRAZOLE SODIUM
     Indication: GASTROOESOPHAGEAL REFLUX DISEASE
     Route: 048
     Dates: start: 2014

REACTIONS (16)
  - Drug intolerance [Recovered/Resolved]
  - Nasopharyngitis [Recovered/Resolved]
  - Skin warm [Recovered/Resolved]
  - Generalised erythema [Recovered/Resolved]
  - Chest discomfort [Recovered/Resolved]
  - Malaise [Recovered/Resolved]
  - Skin discolouration [Recovering/Resolving]
  - Erythema [Recovered/Resolved]
  - Hyperhidrosis [Recovered/Resolved]
  - Headache [Recovered/Resolved]
  - Fatigue [Not Recovered/Not Resolved]
  - Feeling hot [Recovered/Resolved]
  - Dizziness [Recovered/Resolved]
  - Nausea [Recovered/Resolved]
  - Diarrhoea [Recovered/Resolved]
  - Pain [Recovered/Resolved]

NARRATIVE: CASE EVENT DATE: 20150326
